FAERS Safety Report 4491091-0 (Version None)
Quarter: 2004Q4

REPORT INFORMATION
  Report Type: 
  Country: None (occurrence: None)
  Receive Date: 20041027
  Receipt Date: 20041019
  Transmission Date: 20050328
  Serious: No
  Sender: FDA-Public Use
  Company Number: ZONI002039

PATIENT
  Age: 33 Year
  Sex: Male

DRUGS (4)
  1. EXCEGRAN (ZONISAMIDE) [Suspect]
     Dosage: 200 MG, 2 IN 1 D, ORAL
     Route: 048
     Dates: start: 20040517, end: 20040601
  2. SELENCIA R (VALPROATE SODIUM) [Concomitant]
  3. PHENYTOIN [Concomitant]
  4. DIAZEPAM [Concomitant]

REACTIONS (4)
  - BLISTER [None]
  - ENANTHEMA [None]
  - EXANTHEM [None]
  - EYE REDNESS [None]
